FAERS Safety Report 4687709-X (Version None)
Quarter: 2005Q2

REPORT INFORMATION
  Report Type: 
  Country: None (occurrence: None)
  Receive Date: 20050610
  Receipt Date: 20000201
  Transmission Date: 20051028
  Serious: Yes (Death, Hospitalization)
  Sender: FDA-Public Use
  Company Number: 200010559DDC

PATIENT
  Age: 70 Year
  Sex: Male

DRUGS (8)
  1. FRUSEMIDE [Suspect]
     Indication: DRUG USE FOR UNKNOWN INDICATION
     Dates: end: 19980502
  2. PERINDOPRIL [Suspect]
     Indication: DRUG USE FOR UNKNOWN INDICATION
     Route: 048
     Dates: end: 19980502
  3. AMIODARONE [Suspect]
     Indication: ARRHYTHMIA
     Route: 048
     Dates: start: 19970701, end: 19980401
  4. PREDNISOLONE [Suspect]
     Indication: DRUG USE FOR UNKNOWN INDICATION
     Route: 048
  5. SIMVASTATIN [Suspect]
     Indication: DRUG USE FOR UNKNOWN INDICATION
     Dates: end: 19980502
  6. ISOSORBIDE DINITRATE [Suspect]
     Indication: DRUG USE FOR UNKNOWN INDICATION
     Route: 048
     Dates: end: 19980502
  7. TENOXICAM [Concomitant]
  8. WARFARIN SODIUM [Concomitant]

REACTIONS (8)
  - CRYPTOGENIC ORGANIZING PNEUMONIA [None]
  - DEATH [None]
  - DIFFUSE ALVEOLAR DAMAGE [None]
  - DRUG TOXICITY [None]
  - DYSPNOEA [None]
  - MYOCARDIAL ISCHAEMIA [None]
  - PULMONARY FIBROSIS [None]
  - RESPIRATORY DISORDER [None]
